FAERS Safety Report 6343641-7 (Version None)
Quarter: 2009Q3

REPORT INFORMATION
  Report Type: 
  Country: None (occurrence: None)
  Receive Date: 20090904
  Receipt Date: 20090904
  Transmission Date: 20100115
  Serious: Yes (Other)
  Sender: FDA-Public Use
  Company Number: None

PATIENT
  Age: 57 Year
  Sex: Female
  Weight: 72.5755 kg

DRUGS (2)
  1. CARBOPLATIN [Suspect]
     Indication: BREAST CANCER
     Dosage: 206 MG Q 2 WEEKS IV
     Route: 042
     Dates: start: 20090427
  2. HERCEPTIN [Suspect]
     Dosage: 212 MG Q .1 WEEK IV
     Route: 042
     Dates: start: 20090201, end: 20090526

REACTIONS (1)
  - CYSTITIS [None]
